FAERS Safety Report 5707103-X (Version None)
Quarter: 2008Q2

REPORT INFORMATION
  Report Type: 
  Country: None (occurrence: None)
  Receive Date: 20080414
  Receipt Date: 20080414
  Transmission Date: 20081010
  Serious: Yes (Life-Threatening, Hospitalization)
  Sender: FDA-Public Use
  Company Number: None

PATIENT
  Age: 50 Year
  Sex: Male
  Weight: 77.1115 kg

DRUGS (1)
  1. EFFEXOR [Suspect]
     Indication: DEPRESSION
     Dosage: 150 DAILY PO;  75 DAILY PO
     Route: 048

REACTIONS (9)
  - ABNORMAL BEHAVIOUR [None]
  - AGITATION [None]
  - ANHEDONIA [None]
  - ANXIETY [None]
  - NERVOUS SYSTEM DISORDER [None]
  - NIGHT SWEATS [None]
  - SEXUAL DYSFUNCTION [None]
  - SUICIDAL IDEATION [None]
  - THINKING ABNORMAL [None]
